FAERS Safety Report 18113422 (Version 1)
Quarter: 2020Q3

REPORT INFORMATION
  Report Type: Spontaneous
  Country: US (occurrence: US)
  Receive Date: 20200805
  Receipt Date: 20200805
  Transmission Date: 20201103
  Serious: Yes (Life-Threatening)
  Sender: FDA-Public Use
  Company Number: None

PATIENT
  Age: 70 Year
  Sex: Male

DRUGS (1)
  1. HYDRALAZINE  (HYDRALAZINE HCL 20MG/ML INJ) [Suspect]
     Active Substance: HYDRALAZINE HYDROCHLORIDE
     Indication: HYPERTENSION
     Dosage: ?          OTHER ROUTE:IV?
     Route: 042
     Dates: start: 20200603, end: 20200603

REACTIONS (4)
  - Blood pressure systolic increased [None]
  - Respiratory rate decreased [None]
  - Feeling hot [None]
  - Anaphylactic reaction [None]

NARRATIVE: CASE EVENT DATE: 20200603
